FAERS Safety Report 17120657 (Version 1)
Quarter: 2019Q4

REPORT INFORMATION
  Report Type: Spontaneous
  Country: GB (occurrence: GB)
  Receive Date: 20191206
  Receipt Date: 20191206
  Transmission Date: 20200122
  Serious: Yes (Other)
  Sender: FDA-Public Use
  Company Number: GB-TEVA-2019-GB-1146984

PATIENT
  Age: 74 Year
  Sex: Male
  Weight: 94 kg

DRUGS (5)
  1. BISOPROLOL [Concomitant]
     Active Substance: BISOPROLOL
     Dosage: 1 DF
     Dates: start: 20190723
  2. LOSARTAN. [Concomitant]
     Active Substance: LOSARTAN
     Dosage: 1 DF
     Dates: start: 20190719
  3. ATORVASTATIN [Concomitant]
     Active Substance: ATORVASTATIN
     Dosage: 1 DF
     Dates: start: 20181112
  4. NAPROXEN. [Suspect]
     Active Substance: NAPROXEN
     Dosage: 1000 MG
     Dates: start: 20191018
  5. AMITRIPTYLINE HYDROCHLORIDE. [Concomitant]
     Active Substance: AMITRIPTYLINE HYDROCHLORIDE
     Dosage: NIGHT, MAY TAKE 2 AT NIGHT,  1 DF
     Dates: start: 20181112, end: 20190816

REACTIONS (2)
  - Paraesthesia [Unknown]
  - Neuropathy peripheral [Recovered/Resolved]

NARRATIVE: CASE EVENT DATE: 20191031
